FAERS Safety Report 7701152-8 (Version None)
Quarter: 2011Q3

REPORT INFORMATION
  Report Type: 
  Country: None (occurrence: None)
  Receive Date: 20110819
  Receipt Date: 20110819
  Transmission Date: 20111222
  Serious: Yes (Death)
  Sender: FDA-Public Use
  Company Number: None

PATIENT
  Age: 67 Year
  Sex: Female

DRUGS (1)
  1. REBIF [Suspect]
     Indication: MULTIPLE SCLEROSIS
     Dosage: 44 MCG  TIW SQ
     Route: 058
     Dates: start: 20080131, end: 20110815

REACTIONS (3)
  - HIP FRACTURE [None]
  - FALL [None]
  - POST PROCEDURAL COMPLICATION [None]
